FAERS Safety Report 10955272 (Version 1)
Quarter: 2015Q1

REPORT INFORMATION
  Report Type: Report from Study
  Country: FR (occurrence: FR)
  Receive Date: 20150326
  Receipt Date: 20150326
  Transmission Date: 20150721
  Serious: Yes (Hospitalization)
  Sender: FDA-Public Use
  Company Number: FR-ROCHE-1556182

PATIENT
  Sex: Female

DRUGS (3)
  1. PARAPLATINE [Concomitant]
     Route: 042
  2. AVASTIN [Suspect]
     Active Substance: BEVACIZUMAB
     Indication: OVARIAN CANCER
     Dosage: ON 06/JAN/2015, SHE RECEIVED LAST ADMINISTRATION OF BEVACIZUMAB BEFORE EVENT.
     Route: 065
     Dates: start: 20140923
  3. TAXOL [Concomitant]
     Active Substance: PACLITAXEL
     Route: 042

REACTIONS (1)
  - Gastrointestinal disorder [Recovered/Resolved]

NARRATIVE: CASE EVENT DATE: 20150111
